FAERS Safety Report 8289097-9 (Version None)
Quarter: 2012Q2

REPORT INFORMATION
  Report Type: 
  Country: None (occurrence: None)
  Receive Date: 20120412
  Receipt Date: 20120409
  Transmission Date: 20120825
  Serious: Yes (Other)
  Sender: FDA-Public Use
  Company Number: PI-06940

PATIENT
  Sex: Female

DRUGS (2)
  1. CHLORAPREP [Suspect]
     Indication: INFECTION PROPHYLAXIS
     Dosage: 0.67 ML, ONCE, TOPICAL
     Route: 061
     Dates: start: 20120227
  2. CHLORAPREP [Suspect]
     Indication: PREOPERATIVE CARE
     Dosage: 0.67 ML, ONCE, TOPICAL
     Route: 061
     Dates: start: 20120227

REACTIONS (7)
  - X-RAY LIMB ABNORMAL [None]
  - FOREIGN BODY REACTION [None]
  - INCISION SITE PAIN [None]
  - ERYTHEMA [None]
  - IMPAIRED WORK ABILITY [None]
  - PAIN IN EXTREMITY [None]
  - LIMB INJURY [None]
